FAERS Safety Report 20144959 (Version 1)
Quarter: 2021Q4

REPORT INFORMATION
  Report Type: Other
  Country: None (occurrence: JP)
  Receive Date: 20211203
  Receipt Date: 20211203
  Transmission Date: 20220304
  Serious: Yes (Hospitalization, Other)
  Sender: FDA-Public Use
  Company Number: JP-WES Pharma Inc-2122645

PATIENT
  Age: 17 Year
  Sex: Male

DRUGS (1)
  1. OXYCODONE HYDROCHLORIDE [Suspect]
     Active Substance: OXYCODONE HYDROCHLORIDE
     Indication: Pain
     Route: 065

REACTIONS (4)
  - Intentional product misuse [Recovered/Resolved]
  - Overdose [Recovered/Resolved]
  - Restless legs syndrome [Recovered/Resolved]
  - Drug use disorder [Recovered/Resolved]
